FAERS Safety Report 18090865 (Version 1)
Quarter: 2020Q3

REPORT INFORMATION
  Report Type: Report from Study
  Country: IT (occurrence: IT)
  Receive Date: 20200730
  Receipt Date: 20200730
  Transmission Date: 20201103
  Serious: Yes (Hospitalization)
  Sender: FDA-Public Use
  Company Number: IT-ACCORD-193413

PATIENT
  Age: 82 Year
  Sex: Male

DRUGS (5)
  1. TRITTICO [Suspect]
     Active Substance: TRAZODONE HYDROCHLORIDE
     Indication: PRODUCT USED FOR UNKNOWN INDICATION
     Dosage: STRENGTH: 75 MG
     Dates: start: 20200101, end: 20200627
  2. QUETIAPINE. [Suspect]
     Active Substance: QUETIAPINE
     Indication: PRODUCT USED FOR UNKNOWN INDICATION
     Dates: start: 20200101, end: 20200626
  3. ENOXAPARIN [Concomitant]
     Active Substance: ENOXAPARIN
  4. RAMIPRIL. [Concomitant]
     Active Substance: RAMIPRIL
  5. TALOFEN [Concomitant]
     Active Substance: PROMAZINE HYDROCHLORIDE

REACTIONS (1)
  - Stupor [Not Recovered/Not Resolved]

NARRATIVE: CASE EVENT DATE: 20200627
